FAERS Safety Report 5352343-5 (Version None)
Quarter: 2007Q2

REPORT INFORMATION
  Report Type: 
  Country: None (occurrence: None)
  Receive Date: 20070606
  Receipt Date: 20070529
  Transmission Date: 20071010
  Serious: Yes (Life-Threatening)
  Sender: FDA-Public Use
  Company Number: GXKR2006GB08021

PATIENT
  Age: 45 Year
  Sex: Male

DRUGS (3)
  1. CITALOPRAM HYDROBROMIDE [Suspect]
     Indication: ANXIETY
     Dosage: 20 MG, UNK, ORAL
     Route: 048
     Dates: start: 20051118
  2. IBUPROFEN [Suspect]
     Dosage: UNK, UNK, ORAL
     Route: 048
     Dates: end: 20060613
  3. CLARITHROMYCIN [Concomitant]

REACTIONS (3)
  - CIRCULATORY COLLAPSE [None]
  - DRUG INTERACTION [None]
  - GASTROINTESTINAL HAEMORRHAGE [None]
